FAERS Safety Report 10097467 (Version 2)
Quarter: 2014Q2

REPORT INFORMATION
  Report Type: Report from Study
  Country: US (occurrence: US)
  Receive Date: 20140423
  Receipt Date: 20140424
  Transmission Date: 20141212
  Serious: Yes (Hospitalization)
  Sender: FDA-Public Use
  Company Number: US-AMGEN-USACT2014028047

PATIENT
  Age: 66 Year
  Sex: Female
  Weight: 84 kg

DRUGS (9)
  1. PANITUMUMAB [Suspect]
     Indication: SQUAMOUS CELL CARCINOMA OF LUNG
     Dosage: 208 MG, UNK
     Route: 065
     Dates: start: 20140402
  2. CARBOPLATIN [Concomitant]
     Indication: SQUAMOUS CELL CARCINOMA OF LUNG
     Dosage: 147 MG, UNK
  3. TAXOL [Concomitant]
     Indication: SQUAMOUS CELL CARCINOMA OF LUNG
     Dosage: 97.5 MG, UNK
  4. CALCIUM [Concomitant]
  5. MAXZIDE [Concomitant]
  6. METOPROLOL [Concomitant]
  7. POTASSIUM [Concomitant]
  8. VITAMIN D                          /00107901/ [Concomitant]
  9. XARELTO [Concomitant]

REACTIONS (1)
  - Atrial fibrillation [Recovered/Resolved]
